FAERS Safety Report 4331265-2 (Version None)
Quarter: 2004Q1

REPORT INFORMATION
  Report Type: 
  Country: None (occurrence: None)
  Receive Date: 20040331
  Receipt Date: 20040318
  Transmission Date: 20041129
  Serious: Yes (Other)
  Sender: FDA-Public Use
  Company Number: 04-000216

PATIENT
  Sex: Female

DRUGS (2)
  1. LOESTRIN 1.5/30 [Suspect]
     Dosage: 20/1000UG, ORAL
     Route: 048
     Dates: start: 19950101
  2. UNSPECIFIED MEDICATION [Concomitant]

REACTIONS (4)
  - DIFFICULTY IN WALKING [None]
  - DRUG INEFFECTIVE [None]
  - NERVOUS SYSTEM DISORDER [None]
  - VERTIGO [None]
